FAERS Safety Report 20579430 (Version 1)
Quarter: 2022Q1

REPORT INFORMATION
  Report Type: Spontaneous
  Country: US (occurrence: US)
  Receive Date: 20220310
  Receipt Date: 20220310
  Transmission Date: 20220424
  Serious: No
  Sender: FDA-Public Use
  Company Number: US-BoehringerIngelheim-2022-BI-158640

PATIENT
  Age: 83 Year
  Sex: Female

DRUGS (1)
  1. PRADAXA [Suspect]
     Active Substance: DABIGATRAN ETEXILATE MESYLATE
     Indication: Diabetes mellitus
     Route: 048
     Dates: start: 20210101

REACTIONS (1)
  - Blood viscosity increased [Not Recovered/Not Resolved]

NARRATIVE: CASE EVENT DATE: 20220310
